FAERS Safety Report 10220259 (Version 1)
Quarter: 2014Q2

REPORT INFORMATION
  Report Type: Spontaneous
  Country: IE (occurrence: IE)
  Receive Date: 20140606
  Receipt Date: 20140606
  Transmission Date: 20141212
  Serious: Yes (Other)
  Sender: FDA-Public Use
  Company Number: IE-AMGEN INC.-IRLSP2014040532

PATIENT
  Sex: 0

DRUGS (1)
  1. MIMPARA [Suspect]
     Indication: PRODUCT USED FOR UNKNOWN INDICATION
     Route: 065

REACTIONS (2)
  - Gastrointestinal tube insertion [Unknown]
  - Incorrect route of drug administration [Unknown]
